FAERS Safety Report 15149153 (Version 1)
Quarter: 2018Q3

REPORT INFORMATION
  Report Type: Spontaneous
  Country: PT (occurrence: PT)
  Receive Date: 20180716
  Receipt Date: 20180716
  Transmission Date: 20181010
  Serious: Yes (Life-Threatening, Other)
  Sender: FDA-Public Use
  Company Number: PT-MYLANLABS-2018M1050873

PATIENT
  Age: 68 Year
  Sex: Female

DRUGS (1)
  1. WARFARIN [Suspect]
     Active Substance: WARFARIN
     Indication: ENDOCARDITIS
     Dosage: UNK
     Route: 065

REACTIONS (6)
  - Arrhythmia [Recovered/Resolved]
  - Dyspnoea [Recovered/Resolved]
  - Prosthetic cardiac valve thrombosis [Recovered/Resolved]
  - Oedema peripheral [Recovered/Resolved]
  - Orthopnoea [Recovered/Resolved]
  - Cardiac failure [Recovered/Resolved]
